FAERS Safety Report 9204425 (Version 1)
Quarter: 2013Q1

REPORT INFORMATION
  Report Type: Spontaneous
  Country: US (occurrence: None)
  Receive Date: 20130329
  Receipt Date: 20130329
  Transmission Date: 20140127
  Serious: Yes (Other)
  Sender: FDA-Public Use
  Company Number: JPI-P-030581

PATIENT
  Age: 27 Year
  Sex: Male

DRUGS (3)
  1. XYREM [Suspect]
     Indication: NARCOLEPSY
     Dosage: 3 GM (1.5 GM, 2 IN 1 D) ,ORAL
     Route: 048
     Dates: start: 20060710
  2. AMPHETAMINE AND DEXTROAMPHETAMINE [Concomitant]
  3. UNSPECIFIED MEDICATIONS [Concomitant]

REACTIONS (3)
  - Gastrointestinal disorder [None]
  - Sleep apnoea syndrome [None]
  - Sleep apnoea syndrome [None]
